FAERS Safety Report 6318474-8 (Version None)
Quarter: 2009Q3

REPORT INFORMATION
  Report Type: 
  Country: None (occurrence: None)
  Receive Date: 20090819
  Receipt Date: 20090804
  Transmission Date: 20100115
  Serious: Yes (Other)
  Sender: FDA-Public Use
  Company Number: 2008AL011794

PATIENT
  Age: 39 Year
  Sex: Female

DRUGS (18)
  1. DIGOXIN [Suspect]
     Dosage: 0.25MG, DAILY, PO
     Route: 048
  2. TOPROL-XL [Concomitant]
  3. LISINOPRIL [Concomitant]
  4. ACEBUTOLOL [Concomitant]
  5. METRONIDAZOLE [Concomitant]
  6. DIFLUCAN [Concomitant]
  7. VEETIDES [Concomitant]
  8. CEPHALEXIN [Concomitant]
  9. ATENOLOL [Concomitant]
  10. CIPROFLOXACIN [Concomitant]
  11. MACRODANTIN [Concomitant]
  12. FLUCONAZOLE [Concomitant]
  13. DIAZEPAM [Concomitant]
  14. DICLOFENAC [Concomitant]
  15. TERCONAZOLE [Concomitant]
  16. CYCLOBENAZOPRINE [Concomitant]
  17. FISH OIL [Concomitant]
  18. MULTI-VITAMIN [Concomitant]

REACTIONS (14)
  - ABDOMINAL PAIN [None]
  - ASTHENIA [None]
  - CHEST PAIN [None]
  - COUGH [None]
  - DECREASED ACTIVITY [None]
  - DYSPNOEA [None]
  - ECONOMIC PROBLEM [None]
  - EMOTIONAL DISTRESS [None]
  - ILL-DEFINED DISORDER [None]
  - IMPAIRED WORK ABILITY [None]
  - PAIN [None]
  - PAIN IN EXTREMITY [None]
  - PROCTALGIA [None]
  - RECTAL HAEMORRHAGE [None]
